FAERS Safety Report 6429366-8 (Version None)
Quarter: 2009Q4

REPORT INFORMATION
  Report Type: 
  Country: None (occurrence: None)
  Receive Date: 20091105
  Receipt Date: 20090513
  Transmission Date: 20100525
  Serious: No
  Sender: FDA-Public Use
  Company Number: US-ABBOTT-09P-163-0573795-00

PATIENT
  Sex: Male
  Weight: 82.628 kg

DRUGS (3)
  1. KALETRA [Suspect]
     Indication: HIV TEST POSITIVE
     Route: 048
     Dates: start: 20030101, end: 20080101
  2. KALETRA [Suspect]
     Route: 048
     Dates: start: 20080101
  3. UNKNOWN MEDICATIONS [Concomitant]
     Indication: HIV TEST POSITIVE

REACTIONS (1)
  - DIARRHOEA [None]
